FAERS Safety Report 4598122-8 (Version None)
Quarter: 2005Q1

REPORT INFORMATION
  Report Type: 
  Country: None (occurrence: None)
  Receive Date: 20050302
  Receipt Date: 20050216
  Transmission Date: 20050727
  Serious: Yes (Hospitalization)
  Sender: FDA-Public Use
  Company Number: FABR-10909

PATIENT
  Age: 52 Year
  Sex: Male
  Weight: 50 kg

DRUGS (23)
  1. FABRAZYME [Suspect]
     Indication: FABRY'S DISEASE
     Dosage: 25 MG Q2WKS IV
     Route: 042
     Dates: start: 20041206
  2. FABRAZYME [Suspect]
     Indication: FABRY'S DISEASE
     Dosage: 70 MG Q2WKS IV
     Route: 042
     Dates: start: 20031015, end: 20040928
  3. TARDYFERON [Concomitant]
  4. PREVISCAN [Concomitant]
  5. SOLUPRED [Concomitant]
  6. ACTONEL [Concomitant]
  7. CACIT [Concomitant]
  8. TRIATEC [Concomitant]
  9. VASTAREL (TRIMETAZIDINE) [Concomitant]
  10. KARDEGIC [Concomitant]
  11. ELISOR [Concomitant]
  12. NITRIDERM (TRINITRINE) [Concomitant]
  13. OMEPRAZOLE [Concomitant]
  14. ELISOR [Concomitant]
  15. NITRIDERM (TRINITRINE) [Concomitant]
  16. OMEPRAZOLE [Concomitant]
  17. EFFERALGAN CODEINE(PARACETAMOL CODEINE) [Concomitant]
  18. ADANCOR [Concomitant]
  19. ULTRALEVURE [Concomitant]
  20. THIAMINE HCL [Concomitant]
  21. VITAMIN B6 [Concomitant]
  22. ZOPICLONE [Concomitant]
  23. ACETAMINOPHEN (PARACETEMOL) [Concomitant]

REACTIONS (2)
  - DEEP VEIN THROMBOSIS [None]
  - INFLAMMATION [None]
